FAERS Safety Report 5123990-0 (Version None)
Quarter: 2006Q4

REPORT INFORMATION
  Report Type: 
  Country: None (occurrence: None)
  Receive Date: 20061010
  Receipt Date: 20061006
  Transmission Date: 20070319
  Serious: Yes (Other)
  Sender: FDA-Public Use
  Company Number: US-MERCK-0610USA04391

PATIENT
  Sex: Female

DRUGS (2)
  1. FOSAMAX [Suspect]
     Route: 048
     Dates: start: 19990101
  2. FOSAMAX [Suspect]
     Route: 048

REACTIONS (2)
  - CAROTID ARTERY DISEASE [None]
  - IMPAIRED HEALING [None]
